FAERS Safety Report 8824683 (Version 1)
Quarter: 2012Q4

REPORT INFORMATION
  Report Type: Report from Study
  Country: IT (occurrence: IT)
  Receive Date: 20121004
  Receipt Date: 20121004
  Transmission Date: 20130627
  Serious: Yes (Death, Other)
  Sender: FDA-Public Use
  Company Number: IT-CELGENEUS-083-21880-12053039

PATIENT

DRUGS (1)
  1. REVLIMID [Suspect]
     Indication: NON-HODGKIN^S LYMPHOMA
     Dosage: 30 Milligram
     Route: 048
     Dates: start: 20101027, end: 20101210

REACTIONS (2)
  - Sepsis [Unknown]
  - Non-Hodgkin^s lymphoma [Fatal]
